FAERS Safety Report 18753849 (Version 1)
Quarter: 2021Q1

REPORT INFORMATION
  Report Type: Other
  Country: CO (occurrence: CO)
  Receive Date: 20210119
  Receipt Date: 20210119
  Transmission Date: 20210419
  Serious: Yes (Other)
  Sender: FDA-Public Use
  Company Number: CO-ROCHE-2751418

PATIENT
  Age: 47 Year
  Sex: Female

DRUGS (6)
  1. XOLAIR [Suspect]
     Active Substance: OMALIZUMAB
     Dosage: 300 MG, QMO
     Route: 058
     Dates: start: 20210105
  2. BILASTINE [Concomitant]
     Active Substance: BILASTINE
  3. LOSARTAN. [Concomitant]
     Active Substance: LOSARTAN
  4. HYDROCHLOROTHIAZIDE. [Concomitant]
     Active Substance: HYDROCHLOROTHIAZIDE
  5. SAXENDA [Concomitant]
     Active Substance: LIRAGLUTIDE
     Indication: WEIGHT DECREASED
     Dosage: UNK
     Route: 065
  6. XOLAIR [Suspect]
     Active Substance: OMALIZUMAB
     Indication: URTICARIA
     Dosage: 300 MG, QMO
     Route: 058
     Dates: start: 20201001

REACTIONS (10)
  - Asphyxia [Unknown]
  - Inflammation [Not Recovered/Not Resolved]
  - Skin depigmentation [Not Recovered/Not Resolved]
  - Arthralgia [Not Recovered/Not Resolved]
  - Insomnia [Not Recovered/Not Resolved]
  - Hypersensitivity [Not Recovered/Not Resolved]
  - Fluid retention [Not Recovered/Not Resolved]
  - Skin exfoliation [Not Recovered/Not Resolved]
  - Food allergy [Not Recovered/Not Resolved]
  - Pain in extremity [Not Recovered/Not Resolved]

NARRATIVE: CASE EVENT DATE: 20201001
